FAERS Safety Report 18995175 (Version 2)
Quarter: 2021Q1

REPORT INFORMATION
  Report Type: Report from Study
  Country: None (occurrence: US)
  Receive Date: 20210311
  Receipt Date: 20210319
  Transmission Date: 20210420
  Serious: No
  Sender: FDA-Public Use
  Company Number: US-ABBVIE-21K-163-3765455-00

PATIENT
  Age: 19 Year
  Sex: Male

DRUGS (1)
  1. HUMIRA [Suspect]
     Active Substance: ADALIMUMAB
     Indication: CROHN^S DISEASE
     Route: 058

REACTIONS (6)
  - Drug ineffective [Unknown]
  - Enteritis [Unknown]
  - Device issue [Unknown]
  - Inflammation [Unknown]
  - Therapeutic response shortened [Unknown]
  - Malaise [Unknown]

NARRATIVE: CASE EVENT DATE: 20210204
